FAERS Safety Report 17729147 (Version 2)
Quarter: 2023Q1

REPORT INFORMATION
  Report Type: Spontaneous
  Country: FR (occurrence: FR)
  Receive Date: 20200430
  Receipt Date: 20230125
  Transmission Date: 20230417
  Serious: Yes (Hospitalization)
  Sender: FDA-Public Use
  Company Number: None

PATIENT
  Age: 67 Year
  Sex: Male

DRUGS (1)
  1. EVEROLIMUS [Suspect]
     Active Substance: EVEROLIMUS
     Indication: Heart transplant
     Dosage: 5 MG, BID
     Route: 048
     Dates: start: 20191217

REACTIONS (6)
  - Product dispensing error [Recovered/Resolved]
  - Overdose [Recovered/Resolved]
  - Epistaxis [Recovered/Resolved]
  - Pruritus [Recovered/Resolved]
  - Pancytopenia [Recovered/Resolved]
  - Rash [Recovered/Resolved]

NARRATIVE: CASE EVENT DATE: 20191217
